FAERS Safety Report 7166641-6 (Version None)
Quarter: 2010Q4

REPORT INFORMATION
  Report Type: 
  Country: None (occurrence: None)
  Receive Date: 20101216
  Receipt Date: 20101207
  Transmission Date: 20110411
  Serious: Yes (Death, Life-Threatening)
  Sender: FDA-Public Use
  Company Number: KZ-NOVOPROD-319878

PATIENT
  Age: 38 Year
  Sex: Female
  Weight: 86 kg

DRUGS (6)
  1. NOVOSEVEN [Suspect]
     Indication: DISSEMINATED INTRAVASCULAR COAGULATION
     Dosage: 2.4 MG, SINGLE
     Route: 042
     Dates: start: 20100925, end: 20100925
  2. FRESH FROZEN PLASMA [Concomitant]
     Indication: HAEMORRHAGE
     Dosage: UNK
     Dates: start: 20100925
  3. RED BLOOD CELLS [Concomitant]
     Indication: HAEMORRHAGE
     Dosage: UNK
     Dates: start: 20100925
  4. PROTEASE INHIBITORS [Concomitant]
     Dosage: UNK
     Dates: start: 20100925
  5. RECORMON                           /00928301/ [Concomitant]
  6. COSMOFER [Concomitant]

REACTIONS (3)
  - ACUTE MYOCARDIAL INFARCTION [None]
  - ACUTE RESPIRATORY FAILURE [None]
  - RENAL FAILURE ACUTE [None]
